FAERS Safety Report 8029728-1 (Version None)
Quarter: 2012Q1

REPORT INFORMATION
  Report Type: 
  Country: None (occurrence: None)
  Receive Date: 20120109
  Receipt Date: 20111230
  Transmission Date: 20120608
  Serious: Yes (Other)
  Sender: FDA-Public Use
  Company Number: US-BAYER-2012-001277

PATIENT
  Age: 49 Year
  Sex: Female

DRUGS (8)
  1. RELPAX [Concomitant]
     Indication: MIGRAINE
  2. ACAI BERRY SUPPLEMENT [Concomitant]
  3. YASMIN [Suspect]
  4. DROSPIRENONE AND ETHINYL ESTRADIOL [Suspect]
  5. INDOMETHACIN [Concomitant]
  6. ELAVIL [Concomitant]
  7. AMITRIPTYLINE HCL [Concomitant]
  8. GABAPENTIN [Concomitant]

REACTIONS (1)
  - DEEP VEIN THROMBOSIS [None]
